FAERS Safety Report 19000875 (Version 1)
Quarter: 2021Q1

REPORT INFORMATION
  Report Type: Spontaneous
  Country: US (occurrence: US)
  Receive Date: 20210312
  Receipt Date: 20210312
  Transmission Date: 20210420
  Serious: No
  Sender: FDA-Public Use
  Company Number: US-AUROBINDO-AUR-APL-2020-050216

PATIENT
  Age: 20 Year
  Sex: Female
  Weight: 99.79 kg

DRUGS (1)
  1. LAMOTRIGINE TABLETS 200 MG [Suspect]
     Active Substance: LAMOTRIGINE
     Indication: SEIZURE
     Dosage: 1.5 OF 200MG TABLETS, TWO TIMES A DAY
     Route: 065

REACTIONS (3)
  - Product substitution issue [Unknown]
  - Wrong technique in product usage process [Unknown]
  - Product physical issue [Unknown]
